FAERS Safety Report 7453467-9 (Version None)
Quarter: 2011Q2

REPORT INFORMATION
  Report Type: 
  Country: None (occurrence: None)
  Receive Date: 20110502
  Receipt Date: 20110208
  Transmission Date: 20111010
  Serious: No
  Sender: FDA-Public Use
  Company Number: US-ASTRAZENECA-2011SE07647

PATIENT
  Age: 728 Month
  Sex: Female

DRUGS (2)
  1. NEXIUM [Suspect]
     Indication: ULCER
     Route: 048
     Dates: start: 20090401, end: 20100501
  2. LANSOPRAZOLE [Concomitant]
     Dates: start: 20100501

REACTIONS (4)
  - ABDOMINAL DISCOMFORT [None]
  - ULCER [None]
  - MALAISE [None]
  - DRUG DOSE OMISSION [None]
